FAERS Safety Report 6167348-4 (Version None)
Quarter: 2009Q2

REPORT INFORMATION
  Report Type: 
  Country: None (occurrence: None)
  Receive Date: 20090424
  Receipt Date: 20090415
  Transmission Date: 20091009
  Serious: Yes (Hospitalization)
  Sender: FDA-Public Use
  Company Number: CA-AVENTIS-200914063GDDC

PATIENT
  Age: 61 Year
  Sex: Male

DRUGS (8)
  1. METFORMIN HCL [Suspect]
  2. GLIBENCLAMIDE [Suspect]
  3. MONOCOR [Suspect]
  4. DIAZEPAM [Suspect]
  5. AVASTIN [Suspect]
     Dosage: DOSE: 15 MG/KG
     Route: 042
  6. FLURAZEPAM [Suspect]
  7. LIPITOR [Suspect]
  8. MEDROXYPROGESTERONE ACETATE [Suspect]

REACTIONS (9)
  - BLOOD CREATININE INCREASED [None]
  - COMA [None]
  - CONFUSIONAL STATE [None]
  - DECREASED APPETITE [None]
  - DEHYDRATION [None]
  - GENERAL PHYSICAL HEALTH DETERIORATION [None]
  - HAEMOGLOBIN DECREASED [None]
  - HYPOTENSION [None]
  - MENTAL DISORDER [None]
